FAERS Safety Report 21350201 (Version 9)
Quarter: 2025Q3

REPORT INFORMATION
  Report Type: Report from Study
  Country: CA (occurrence: CA)
  Receive Date: 20220919
  Receipt Date: 20250905
  Transmission Date: 20251020
  Serious: Yes (Other)
  Sender: BIOCON
  Company Number: CA-MYLANLABS-2022M1094269

PATIENT

DRUGS (4)
  1. HULIO [Suspect]
     Active Substance: ADALIMUMAB-FKJP
     Indication: Crohn^s disease
     Route: 055
     Dates: start: 2019
  2. HULIO [Suspect]
     Active Substance: ADALIMUMAB-FKJP
     Route: 058
     Dates: start: 20211207
  3. HULIO [Suspect]
     Active Substance: ADALIMUMAB-FKJP
     Route: 058
     Dates: start: 20211207
  4. METHIMAZOLE [Concomitant]
     Active Substance: METHIMAZOLE
     Indication: Thyroid disorder
     Route: 065

REACTIONS (31)
  - Pyoderma gangrenosum [Unknown]
  - Anal ulcer [Unknown]
  - Crohn^s disease [Recovering/Resolving]
  - Uveitis [Unknown]
  - Fallopian tube cancer [Unknown]
  - Haematochezia [Unknown]
  - Anal fissure [Unknown]
  - Fistula [Unknown]
  - Abdominal mass [Recovered/Resolved]
  - Ear pain [Unknown]
  - Mouth ulceration [Recovered/Resolved]
  - Skin ulcer [Unknown]
  - Ovarian germ cell teratoma benign [Unknown]
  - Haemorrhoids [Unknown]
  - Genital pain [Unknown]
  - Vitamin B12 increased [Unknown]
  - Iron deficiency [Unknown]
  - Stomatitis [Unknown]
  - Aphthous ulcer [Unknown]
  - Harvey-Bradshaw index increased [Unknown]
  - Prolapse [Unknown]
  - Stress [Unknown]
  - Arthralgia [Unknown]
  - Depression [Unknown]
  - Diarrhoea [Unknown]
  - Malaise [Unknown]
  - Abdominal pain [Unknown]
  - Sexually transmitted disease [Unknown]
  - Abscess [Unknown]
  - Product dose omission issue [Unknown]
  - Inappropriate schedule of product administration [Unknown]
